FAERS Safety Report 7432659-9 (Version None)
Quarter: 2011Q2

REPORT INFORMATION
  Report Type: 
  Country: None (occurrence: None)
  Receive Date: 20110422
  Receipt Date: 20110413
  Transmission Date: 20111010
  Serious: Yes (Other)
  Sender: FDA-Public Use
  Company Number: CA-ROCHE-745499

PATIENT
  Sex: Male
  Weight: 97.1 kg

DRUGS (4)
  1. BEVACIZUMAB [Suspect]
     Indication: COLORECTAL CANCER
     Dosage: FORM: INFUSION
     Route: 042
     Dates: start: 20091022
  2. BEVACIZUMAB [Suspect]
     Route: 042
     Dates: start: 20101027, end: 20101027
  3. CAPECITABINE [Suspect]
     Route: 065
  4. OXALIPLATIN [Suspect]
     Route: 065

REACTIONS (1)
  - NEOPLASM MALIGNANT [None]
